FAERS Safety Report 7980497-0 (Version None)
Quarter: 2011Q4

REPORT INFORMATION
  Report Type: 
  Country: None (occurrence: None)
  Receive Date: 20111214
  Receipt Date: 20111208
  Transmission Date: 20120403
  Serious: Yes (Other)
  Sender: FDA-Public Use
  Company Number: US-GLAXOSMITHKLINE-A0958026A

PATIENT
  Age: 65 Year
  Sex: Male

DRUGS (1)
  1. VOTRIENT [Suspect]
     Dosage: 800MG PER DAY
     Route: 065
     Dates: start: 20111026, end: 20111205

REACTIONS (4)
  - MALAISE [None]
  - LIVER FUNCTION TEST ABNORMAL [None]
  - DYSPNOEA [None]
  - CHROMATURIA [None]
